FAERS Safety Report 8147205-4 (Version None)
Quarter: 2012Q1

REPORT INFORMATION
  Report Type: 
  Country: None (occurrence: None)
  Receive Date: 20120218
  Receipt Date: 20110628
  Transmission Date: 20120608
  Serious: Yes (Other)
  Sender: FDA-Public Use
  Company Number: US-ALLERGAN-1100863US

PATIENT
  Age: 2 Year
  Sex: Female
  Weight: 13 kg

DRUGS (1)
  1. BOTULINUM TOXIN TYPE A [Suspect]
     Indication: MUSCLE SPASTICITY
     Dosage: 200 UNITS, SINGLE
     Route: 030
     Dates: start: 20101123, end: 20101123

REACTIONS (8)
  - DROOLING [None]
  - EYELID PTOSIS [None]
  - TORTICOLLIS [None]
  - GAIT DISTURBANCE [None]
  - OVERDOSE [None]
  - DYSPHONIA [None]
  - MUSCULAR WEAKNESS [None]
  - POOR SUCKING REFLEX [None]
